FAERS Safety Report 6803057-3 (Version None)
Quarter: 2010Q2

REPORT INFORMATION
  Report Type: 
  Country: None (occurrence: None)
  Receive Date: 20100628
  Receipt Date: 20100624
  Transmission Date: 20101027
  Serious: Yes (Hospitalization)
  Sender: FDA-Public Use
  Company Number: ZA-ALLERGAN-1007155US

PATIENT
  Age: 56 Year
  Sex: Female
  Weight: 76 kg

DRUGS (21)
  1. BLINDED DEXAMETHASONE 0.35 MG IMP [Suspect]
     Indication: DIABETIC RETINAL OEDEMA
     Dosage: UNK
     Dates: start: 20091026, end: 20091026
  2. BLINDED DEXAMETHASONE 0.7 MG IMP [Suspect]
     Indication: DIABETIC RETINAL OEDEMA
     Dosage: UNK
     Dates: start: 20091026, end: 20091026
  3. BLINDED INTRAVITREAL SHAM [Suspect]
     Indication: DIABETIC RETINAL OEDEMA
     Dosage: UNK
     Dates: start: 20091026, end: 20091026
  4. BLINDED DEXAMETHASONE 0.35 MG IMP [Suspect]
     Dosage: UNK
     Dates: start: 20090511, end: 20090511
  5. BLINDED DEXAMETHASONE 0.7 MG IMP [Suspect]
     Dosage: UNK
     Dates: start: 20090511, end: 20090511
  6. BLINDED INTRAVITREAL SHAM [Suspect]
     Dosage: UNK
     Dates: start: 20090511, end: 20090511
  7. BLINDED DEXAMETHASONE 0.35 MG IMP [Suspect]
     Dosage: UNK
     Dates: start: 20081013, end: 20081013
  8. BLINDED DEXAMETHASONE 0.7 MG IMP [Suspect]
     Dosage: UNK
     Dates: start: 20081013, end: 20081013
  9. BLINDED INTRAVITREAL SHAM [Suspect]
     Dosage: UNK
     Dates: start: 20081013, end: 20081013
  10. BLINDED DEXAMETHASONE 0.35 MG IMP [Suspect]
     Dosage: UNK
     Dates: start: 20080407, end: 20080407
  11. BLINDED DEXAMETHASONE 0.7 MG IMP [Suspect]
     Dosage: UNK
     Dates: start: 20080407, end: 20080407
  12. BLINDED INTRAVITREAL SHAM [Suspect]
     Dosage: UNK
     Dates: start: 20080407, end: 20080407
  13. ADALAT [Concomitant]
     Indication: HYPERTENSION
     Dosage: 30 MG, UNK
     Route: 048
     Dates: start: 19840101
  14. RICHQ [Concomitant]
     Indication: HYPERTENSION
     Dosage: 12.5 MG, QD
     Route: 048
     Dates: start: 19840101
  15. PROTOPHANE [Concomitant]
     Indication: DIABETES MELLITUS
     Dosage: 26 UNITS, UNK
     Route: 058
     Dates: start: 20021001
  16. HYDROCHLOROTHIAZIDE [Concomitant]
     Indication: HYPERTENSION
     Dosage: 12.5 MG, QD
     Route: 048
     Dates: start: 19840601
  17. SLOW-K [Concomitant]
     Indication: MINERAL SUPPLEMENTATION
     Dosage: 600 MG, QD
     Route: 048
     Dates: start: 19840601
  18. COVERSYL [Concomitant]
     Indication: HYPERTENSION
     Dosage: 6 MG, UNK
     Route: 048
     Dates: start: 20050101, end: 20080728
  19. METFORMIN HCL [Concomitant]
     Indication: DIABETES MELLITUS
     Dosage: 850 MG, TID
     Route: 048
     Dates: start: 19830101
  20. GLYCRON [Concomitant]
     Dosage: 160 MG, BID
     Route: 048
     Dates: start: 20080728
  21. PREXIUM [Concomitant]
     Indication: HYPERTENSION
     Dosage: 4 MG, QD
     Route: 048
     Dates: start: 20080729

REACTIONS (1)
  - CATARACT [None]
